FAERS Safety Report 9827328 (Version 1)
Quarter: 2013Q4

REPORT INFORMATION
  Report Type: Spontaneous
  Country: US (occurrence: None)
  Receive Date: 20131223
  Receipt Date: 20131223
  Transmission Date: 20140711
  Serious: No
  Sender: FDA-Public Use
  Company Number: 220371LEO

PATIENT
  Age: 46 Year
  Sex: Female

DRUGS (3)
  1. PICATO [Suspect]
     Indication: SKIN DISORDER
     Dosage: 1 IN 1 D, TOPICAL
     Dates: start: 20130130
  2. ATIVAN (LORAZEPAM) (0.5 MG) [Concomitant]
  3. MVI MULTIVITAMIN /00831701/) [Concomitant]

REACTIONS (3)
  - Application site erythema [None]
  - Application site vesicles [None]
  - Drug administered at inappropriate site [None]
